FAERS Safety Report 12662294 (Version 1)
Quarter: 2016Q3

REPORT INFORMATION
  Report Type: Spontaneous
  Country: DE (occurrence: DE)
  Receive Date: 20160817
  Receipt Date: 20160817
  Transmission Date: 20161109
  Serious: Yes (Hospitalization)
  Sender: FDA-Public Use
  Company Number: DE-JNJFOC-20160716128

PATIENT
  Sex: Female

DRUGS (1)
  1. DARZALEX [Suspect]
     Active Substance: DARATUMUMAB
     Indication: PRODUCT USED FOR UNKNOWN INDICATION
     Route: 042

REACTIONS (5)
  - Drug dose omission [Unknown]
  - Femoral neck fracture [Unknown]
  - Nausea [Recovered/Resolved]
  - Fall [Unknown]
  - Adverse event [Unknown]
